FAERS Safety Report 10618039 (Version 10)
Quarter: 2016Q3

REPORT INFORMATION
  Report Type: Report from Study
  Country: BR (occurrence: BR)
  Receive Date: 20141202
  Receipt Date: 20160822
  Transmission Date: 20161109
  Serious: Yes (Hospitalization, Other)
  Sender: FDA-Public Use
  Company Number: BR-ROCHE-779934

PATIENT
  Age: 75 Year
  Sex: Female
  Weight: 75 kg

DRUGS (17)
  1. OMEPRAZOLE. [Concomitant]
     Active Substance: OMEPRAZOLE
  2. NEXIUM [Concomitant]
     Active Substance: ESOMEPRAZOLE MAGNESIUM
     Dosage: 20 MG AND 40 MG
     Route: 065
  3. OMEGA 3 [Concomitant]
     Active Substance: OMEGA-3 FATTY ACIDS
     Route: 065
  4. MABTHERA [Suspect]
     Active Substance: RITUXIMAB
     Dosage: RECEIVED THE MOST RECENT INFUSION ON 17/NOV/2014, 15/JUL/2015.
     Route: 042
     Dates: start: 20091001
  5. SYNTHROID [Concomitant]
     Active Substance: LEVOTHYROXINE SODIUM
  6. MABTHERA [Suspect]
     Active Substance: RITUXIMAB
     Route: 042
  7. CYMBALTA [Concomitant]
     Active Substance: DULOXETINE HYDROCHLORIDE
  8. TAMARINE (BRAZIL) [Concomitant]
  9. MABTHERA [Suspect]
     Active Substance: RITUXIMAB
     Route: 042
  10. ESOMEPRAZOLE [Concomitant]
     Active Substance: ESOMEPRAZOLE
  11. LISADOR [Concomitant]
     Active Substance: DIPYRONE\PROMETHAZINE HYDROCHLORIDE
  12. FLANAX (BRAZIL) [Concomitant]
  13. MABTHERA [Suspect]
     Active Substance: RITUXIMAB
     Indication: RHEUMATOID ARTHRITIS
     Route: 042
     Dates: start: 2007, end: 20101015
  14. VENLAFAXINE [Concomitant]
     Active Substance: VENLAFAXINE HYDROCHLORIDE
     Route: 065
  15. RIVOTRIL [Suspect]
     Active Substance: CLONAZEPAM
     Indication: PRODUCT USED FOR UNKNOWN INDICATION
     Dosage: DAILY
     Route: 065
  16. ARAVA [Concomitant]
     Active Substance: LEFLUNOMIDE
     Indication: RHEUMATOID ARTHRITIS
     Route: 065
  17. DAFLON [Concomitant]
     Active Substance: DIOSMIN\HESPERIDIN
     Route: 065

REACTIONS (14)
  - Weight increased [Recovering/Resolving]
  - Arthralgia [Recovered/Resolved]
  - Bedridden [Recovering/Resolving]
  - Malaise [Not Recovered/Not Resolved]
  - Fall [Unknown]
  - Body height decreased [Recovering/Resolving]
  - Femur fracture [Recovering/Resolving]
  - Upper limb fracture [Recovering/Resolving]
  - Arthropathy [Recovering/Resolving]
  - Tracheobronchitis [Recovered/Resolved]
  - Pneumonia [Not Recovered/Not Resolved]
  - Movement disorder [Unknown]
  - Gastric disorder [Not Recovered/Not Resolved]
  - Urinary tract infection [Not Recovered/Not Resolved]

NARRATIVE: CASE EVENT DATE: 201509
